FAERS Safety Report 4635523-3 (Version None)
Quarter: 2005Q2

REPORT INFORMATION
  Report Type: 
  Country: None (occurrence: None)
  Receive Date: 20050413
  Receipt Date: 20050328
  Transmission Date: 20051028
  Serious: No
  Sender: FDA-Public Use
  Company Number: RS004963-J

PATIENT
  Age: 63 Year
  Sex: Male

DRUGS (6)
  1. RABEPRAZOLE SODIUM [Suspect]
     Indication: REFLUX OESOPHAGITIS
     Dosage: 20 MG, 1 IN 1 D, ORAL
     Route: 048
     Dates: start: 20050112, end: 20050115
  2. ALLOID (SODIUM GLGINATE) [Concomitant]
  3. GASTROM (ECABET MONOSODIUM) [Concomitant]
  4. GABALON (BACLOFEN) [Concomitant]
  5. MADOPAR (MADOPAR) [Concomitant]
  6. NORVASC [Concomitant]

REACTIONS (6)
  - ACCOMMODATION DISORDER [None]
  - DIZZINESS [None]
  - PHOTOPSIA [None]
  - PHOTOSENSITIVITY REACTION [None]
  - RETINAL TEAR [None]
  - VISION BLURRED [None]
